FAERS Safety Report 4384113-9 (Version None)
Quarter: 2004Q2

REPORT INFORMATION
  Report Type: 
  Country: None (occurrence: None)
  Receive Date: 20040618
  Receipt Date: 20040607
  Transmission Date: 20050107
  Serious: Yes (Life-Threatening)
  Sender: FDA-Public Use
  Company Number: HQWYE119026MAY04

PATIENT
  Age: 62 Year
  Sex: Male

DRUGS (4)
  1. AMIODARONE HCL [Suspect]
     Indication: VENTRICULAR FIBRILLATION
     Dosage: 100 MG 2X PER 1 DAY
     Route: 048
     Dates: start: 20010101
  2. QUINAPRIL HCL [Concomitant]
  3. MEILAX (ETHYL LOFLAZEPATE) [Concomitant]
  4. HALCION [Concomitant]

REACTIONS (4)
  - GAMMA-GLUTAMYLTRANSFERASE INCREASED [None]
  - LYMPH NODE CALCIFICATION [None]
  - THYROID CANCER METASTATIC [None]
  - THYROID GLAND CANCER [None]
